FAERS Safety Report 5147763-8 (Version None)
Quarter: 2006Q4

REPORT INFORMATION
  Report Type: 
  Country: None (occurrence: None)
  Receive Date: 20061110
  Receipt Date: 20061030
  Transmission Date: 20070319
  Serious: Yes (Hospitalization)
  Sender: FDA-Public Use
  Company Number: GXKR2006AU06857

PATIENT
  Age: 63 Year

DRUGS (2)
  1. METOPROLOL TARTRATE [Suspect]
     Dosage: 300 MG
     Route: 048
  2. DILTIAZEM (NGX) [Suspect]
     Dosage: 720 MG
     Route: 048

REACTIONS (2)
  - NODAL ARRHYTHMIA [None]
  - OVERDOSE [None]
